FAERS Safety Report 10602706 (Version 3)
Quarter: 2014Q4

REPORT INFORMATION
  Report Type: Spontaneous
  Country: DE (occurrence: DE)
  Receive Date: 20141124
  Receipt Date: 20141201
  Transmission Date: 20150529
  Serious: No
  Sender: FDA-Public Use
  Company Number: DE-GLAXOSMITHKLINE-DE2014GSK002479

PATIENT
  Age: 54 Year
  Sex: Female
  Weight: 75 kg

DRUGS (9)
  1. L-THYROXIN [Concomitant]
     Active Substance: LEVOTHYROXINE SODIUM
     Dosage: 88 UNK, QD
  2. ZOPICLON [Concomitant]
     Active Substance: ZOPICLONE
     Dosage: 7.5 MG, QD
  3. PENTASA [Suspect]
     Active Substance: MESALAMINE
     Indication: PRODUCT USED FOR UNKNOWN INDICATION
  4. PANTOZOL [Concomitant]
     Active Substance: PANTOPRAZOLE SODIUM
     Dosage: 40 MG, QD
  5. QUILONUM RETARD [Suspect]
     Active Substance: LITHIUM CARBONATE
     Indication: BIPOLAR DISORDER
     Dosage: UNK MG, UNK
     Dates: start: 201303
  6. TEVANATE [Concomitant]
     Active Substance: ALENDRONIC ACID
     Dosage: 10 MG, QD
  7. ELONTRIL [Concomitant]
     Active Substance: BUPROPION HYDROCHLORIDE
     Dosage: 150 MG, BID
  8. FUROSEMID [Concomitant]
     Active Substance: FUROSEMIDE
     Dosage: 40 MG, QD
  9. CALCIVIT [Concomitant]

REACTIONS (7)
  - Blister [Unknown]
  - Skin disorder [Recovered/Resolved with Sequelae]
  - Ulcer [Unknown]
  - Tongue disorder [Not Recovered/Not Resolved]
  - Breast disorder [Recovered/Resolved]
  - Musculoskeletal disorder [Recovered/Resolved]
  - Bladder disorder [Not Recovered/Not Resolved]

NARRATIVE: CASE EVENT DATE: 201406
